FAERS Safety Report 20783975 (Version 1)
Quarter: 2022Q2

REPORT INFORMATION
  Report Type: Spontaneous
  Country: US (occurrence: US)
  Receive Date: 20220504
  Receipt Date: 20220504
  Transmission Date: 20220721
  Serious: No
  Sender: FDA-Public Use
  Company Number: US-BIOGEN-2019BI00810534

PATIENT
  Age: 21 Year
  Sex: Female

DRUGS (1)
  1. SPINRAZA [Suspect]
     Active Substance: NUSINERSEN
     Indication: Spinal muscular atrophy
     Dosage: LOADING DOSES: FIRST 3 LOADING DOSES EVERY 14 DAYS; 4TH LOADING DOSE ONCE AFTER 30 DAYS. MAINTENA...
     Route: 037
     Dates: start: 20190708

REACTIONS (5)
  - Anxiety [Recovered/Resolved]
  - Asthenia [Unknown]
  - Mobility decreased [Unknown]
  - Emotional distress [Unknown]
  - Inappropriate schedule of product administration [Unknown]

NARRATIVE: CASE EVENT DATE: 20191114
